FAERS Safety Report 16879190 (Version 5)
Quarter: 2020Q2

REPORT INFORMATION
  Report Type: Spontaneous
  Country: JP (occurrence: JP)
  Receive Date: 20191003
  Receipt Date: 20200616
  Transmission Date: 20200713
  Serious: Yes (Other)
  Sender: FDA-Public Use
  Company Number: JP-BEH-2019107405

PATIENT
  Age: 25 Year
  Sex: Male
  Weight: 107 kg

DRUGS (9)
  1. IDELVION [Suspect]
     Active Substance: COAGULATION FACTOR IX RECOMBINANT HUMAN
     Indication: FACTOR IX DEFICIENCY
     Dosage: UNK
     Route: 042
     Dates: start: 20180905
  2. IDELVION [Suspect]
     Active Substance: COAGULATION FACTOR IX RECOMBINANT HUMAN
     Indication: PROPHYLAXIS
     Dosage: UNK
     Route: 042
     Dates: start: 201907, end: 201907
  3. IDELVION [Suspect]
     Active Substance: COAGULATION FACTOR IX RECOMBINANT HUMAN
     Dosage: 4000 INTERNATIONAL UNIT, QD (1DAY)
     Route: 042
     Dates: start: 20191106, end: 20191106
  4. TRIAZOLAM. [Concomitant]
     Active Substance: TRIAZOLAM
     Route: 048
  5. IDELVION [Suspect]
     Active Substance: COAGULATION FACTOR IX RECOMBINANT HUMAN
     Indication: PROPHYLAXIS
     Dosage: UNK
     Route: 042
     Dates: start: 201907, end: 201907
  6. DEPAS [Concomitant]
     Route: 048
  7. IDELVION [Suspect]
     Active Substance: COAGULATION FACTOR IX RECOMBINANT HUMAN
     Indication: FACTOR IX DEFICIENCY
     Dosage: UNK
     Route: 042
     Dates: start: 20180905
  8. IDELVION [Suspect]
     Active Substance: COAGULATION FACTOR IX RECOMBINANT HUMAN
     Dosage: 4000 INTERNATIONAL UNIT, QD (1DAY)
     Route: 042
     Dates: start: 20191106, end: 20191106
  9. LEXOTAN [Concomitant]
     Active Substance: BROMAZEPAM
     Route: 048

REACTIONS (2)
  - Type 2 diabetes mellitus [Recovering/Resolving]
  - Traumatic haemorrhage [Recovered/Resolved]

NARRATIVE: CASE EVENT DATE: 201906
